FAERS Safety Report 5534438-6 (Version None)
Quarter: 2007Q4

REPORT INFORMATION
  Report Type: 
  Country: None (occurrence: None)
  Receive Date: 20071205
  Receipt Date: 20071130
  Transmission Date: 20080405
  Serious: Yes (Hospitalization)
  Sender: FDA-Public Use
  Company Number: A0696780A

PATIENT
  Age: 78 Year
  Sex: Male

DRUGS (3)
  1. COREG [Suspect]
     Indication: HYPERTENSION
     Dosage: 12.5MG TWICE PER DAY
     Route: 048
     Dates: start: 20070301, end: 20071121
  2. ALTACE [Concomitant]
  3. FUROSEMIDE [Concomitant]

REACTIONS (4)
  - BALANCE DISORDER [None]
  - CARDIAC DISORDER [None]
  - DISORIENTATION [None]
  - DIZZINESS [None]
